FAERS Safety Report 14340912 (Version 4)
Quarter: 2018Q3

REPORT INFORMATION
  Report Type: Report from Study
  Country: JP (occurrence: JP)
  Receive Date: 20180102
  Receipt Date: 20180709
  Transmission Date: 20181010
  Serious: Yes (Life-Threatening, Hospitalization, Other)
  Sender: FDA-Public Use
  Company Number: JP-CONCORDIA PHARMACEUTICALS INC.-GSH201801-000001

PATIENT
  Age: 45 Year
  Sex: Female
  Weight: 42.8 kg

DRUGS (10)
  1. BAYASPIRIN [Concomitant]
     Active Substance: ASPIRIN
     Indication: PROPHYLAXIS
  2. NEXIUM [Concomitant]
     Active Substance: ESOMEPRAZOLE MAGNESIUM
     Indication: PROPHYLAXIS
  3. WARFARIN [Concomitant]
     Active Substance: WARFARIN
  4. CORTRIL [Concomitant]
     Active Substance: HYDROCORTISONE
     Indication: SYSTEMIC LUPUS ERYTHEMATOSUS
  5. THYRADIN [Concomitant]
     Active Substance: LEVOTHYROXINE
  6. EDIROL [Concomitant]
     Active Substance: ELDECALCITOL
     Indication: PROPHYLAXIS
  7. PLAQUENIL [Suspect]
     Active Substance: HYDROXYCHLOROQUINE SULFATE
     Indication: SYSTEMIC LUPUS ERYTHEMATOSUS
     Route: 048
     Dates: start: 20160902, end: 20160906
  8. BACTRAMIN [Concomitant]
     Active Substance: SULFAMETHOXAZOLE\TRIMETHOPRIM
     Indication: PROPHYLAXIS
  9. MIYA?BM [Concomitant]
     Active Substance: CLOSTRIDIUM BUTYRICUM SPORES STRAIN M-55
     Indication: PROPHYLAXIS
  10. PROMAC [Concomitant]
     Active Substance: NITROFURANTOIN
     Indication: PROPHYLAXIS

REACTIONS (5)
  - Disseminated intravascular coagulation [Recovering/Resolving]
  - Pancreatitis acute [Recovering/Resolving]
  - Abdominal pain [Unknown]
  - Nausea [Unknown]
  - Duodenitis [Recovering/Resolving]

NARRATIVE: CASE EVENT DATE: 20160903
